FAERS Safety Report 11047990 (Version 1)
Quarter: 2015Q2

REPORT INFORMATION
  Report Type: Spontaneous
  Country: US (occurrence: None)
  Receive Date: 20150417
  Receipt Date: 20150417
  Transmission Date: 20150821
  Serious: Yes (Hospitalization)
  Sender: FDA-Public Use
  Company Number: None

PATIENT
  Age: 63 Year
  Sex: Female
  Weight: 51.71 kg

DRUGS (11)
  1. MULTIVITAMIN/MULTI-MINERAL [Concomitant]
  2. KRILL OIL BLEND [Concomitant]
  3. CALCIUM W / VIT D [Concomitant]
  4. ALVESCO INHALER [Concomitant]
  5. VITAMIN C [Concomitant]
     Active Substance: ASCORBIC ACID
  6. D3 [Concomitant]
     Active Substance: 25-HYDROXYCHOLECALCIFEROL, 5-TRANS-
  7. CLINDAMYCIN [Suspect]
     Active Substance: CLINDAMYCIN\CLINDAMYCIN PHOSPHATE
     Indication: TOOTH INFECTION
     Dosage: 2 NOW THEN 1
     Route: 048
     Dates: start: 20150310, end: 20150316
  8. COMPOUNDED HRT [Concomitant]
  9. MONTELUKAST [Concomitant]
     Active Substance: MONTELUKAST SODIUM
  10. COMPOUNDED ESTRIOL VAGINAL CREAM [Concomitant]
  11. CINNAMON. [Concomitant]
     Active Substance: CINNAMON

REACTIONS (6)
  - Abdominal discomfort [None]
  - Diarrhoea [None]
  - Clostridium test positive [None]
  - Gastroenteritis viral [None]
  - Muscle spasms [None]
  - Drug dose omission [None]

NARRATIVE: CASE EVENT DATE: 20150329
